FAERS Safety Report 6574908-5 (Version None)
Quarter: 2010Q1

REPORT INFORMATION
  Report Type: 
  Country: None (occurrence: None)
  Receive Date: 20100209
  Receipt Date: 20100129
  Transmission Date: 20100710
  Serious: Yes (Hospitalization, Other)
  Sender: FDA-Public Use
  Company Number: JP-ASTRAZENECA-2010SE02100

PATIENT
  Age: 12349 Day
  Sex: Female
  Weight: 56 kg

DRUGS (8)
  1. SEROQUEL [Suspect]
     Indication: BRIEF PSYCHOTIC DISORDER, WITH POSTPARTUM ONSET
     Route: 048
     Dates: start: 20091102, end: 20091105
  2. SEROQUEL [Suspect]
     Route: 048
     Dates: start: 20091106, end: 20091203
  3. SEROQUEL [Suspect]
     Dosage: 100 MG DAILY DIVIDED INTO THREE DOSES
     Route: 048
     Dates: start: 20091204, end: 20091230
  4. SEROQUEL [Suspect]
     Route: 048
     Dates: start: 20100120
  5. RISPERDAL [Suspect]
     Indication: BRIEF PSYCHOTIC DISORDER, WITH POSTPARTUM ONSET
     Route: 048
     Dates: start: 20091029, end: 20091105
  6. CERCINE [Concomitant]
     Indication: BRIEF PSYCHOTIC DISORDER, WITH POSTPARTUM ONSET
     Dates: start: 20091029, end: 20091105
  7. LEVOTOMIN [Concomitant]
     Indication: BRIEF PSYCHOTIC DISORDER, WITH POSTPARTUM ONSET
     Dates: start: 20091029, end: 20091105
  8. LUVOX [Concomitant]
     Indication: BRIEF PSYCHOTIC DISORDER, WITH POSTPARTUM ONSET
     Dates: start: 20100120

REACTIONS (3)
  - ALOPECIA AREATA [None]
  - DANDRUFF [None]
  - SUICIDE ATTEMPT [None]
